FAERS Safety Report 5515401-8 (Version None)
Quarter: 2007Q4

REPORT INFORMATION
  Report Type: 
  Country: None (occurrence: None)
  Receive Date: 20071113
  Receipt Date: 20070207
  Transmission Date: 20080405
  Serious: No
  Sender: FDA-Public Use
  Company Number: A0638766A

PATIENT
  Age: 90 Year
  Sex: Male

DRUGS (5)
  1. COREG [Suspect]
     Indication: HYPERTENSION
     Dosage: 6.25MG TWICE PER DAY
     Route: 048
  2. HYTRIN [Concomitant]
  3. COZAAR [Concomitant]
  4. ASPIRIN [Concomitant]
  5. VITAMINS [Concomitant]

REACTIONS (3)
  - DRUG INEFFECTIVE [None]
  - FEELING COLD [None]
  - HEART RATE DECREASED [None]
